FAERS Safety Report 19074325 (Version 1)
Quarter: 2021Q1

REPORT INFORMATION
  Report Type: Spontaneous
  Country: SE (occurrence: SE)
  Receive Date: 20210330
  Receipt Date: 20210330
  Transmission Date: 20210420
  Serious: Yes (Hospitalization)
  Sender: FDA-Public Use
  Company Number: SE-PFIZER INC-2021311256

PATIENT
  Age: 19 Year
  Sex: Female

DRUGS (3)
  1. NEBCINA [Suspect]
     Active Substance: TOBRAMYCIN SULFATE
     Dosage: 1 DF, WEEKLY
     Dates: start: 20210215
  2. MERONEM [Suspect]
     Active Substance: MEROPENEM
     Dosage: 1 DF, WEEKLY
     Dates: start: 20210215
  3. AZITROMAX [Concomitant]
     Active Substance: AZITHROMYCIN ANHYDROUS
     Dosage: UNK

REACTIONS (2)
  - Disease recurrence [Recovered/Resolved]
  - Back pain [Recovered/Resolved]

NARRATIVE: CASE EVENT DATE: 20210215
